FAERS Safety Report 7397433-0 (Version None)
Quarter: 2011Q2

REPORT INFORMATION
  Report Type: 
  Country: None (occurrence: None)
  Receive Date: 20110401
  Receipt Date: 20110401
  Transmission Date: 20111010
  Serious: Yes (Hospitalization)
  Sender: FDA-Public Use
  Company Number: None

PATIENT
  Age: 80 Year
  Sex: Female
  Weight: 63.5036 kg

DRUGS (1)
  1. ASACOL [Suspect]
     Indication: COLITIS ULCERATIVE
     Dosage: 1200 MG EVERY 8 HRS BY MOUTH
     Route: 048
     Dates: start: 20101109, end: 20101227

REACTIONS (5)
  - STRESS [None]
  - DIARRHOEA [None]
  - ARRHYTHMIA [None]
  - NO THERAPEUTIC RESPONSE [None]
  - DRUG HYPERSENSITIVITY [None]
